FAERS Safety Report 16775181 (Version 2)
Quarter: 2019Q3

REPORT INFORMATION
  Report Type: Report from Study
  Country: US (occurrence: US)
  Receive Date: 20190905
  Receipt Date: 20190927
  Transmission Date: 20191005
  Serious: No
  Sender: FDA-Public Use
  Company Number: PHEH2019US036394

PATIENT
  Sex: Male

DRUGS (6)
  1. COSENTYX [Suspect]
     Active Substance: SECUKINUMAB
     Dosage: 300 MG, QW
     Route: 058
  2. COSENTYX [Suspect]
     Active Substance: SECUKINUMAB
     Dosage: 300 MG, QMO
     Route: 058
  3. COSENTYX [Suspect]
     Active Substance: SECUKINUMAB
     Indication: PSORIASIS
     Dosage: 300 MG, QW
     Route: 058
  4. COSENTYX [Suspect]
     Active Substance: SECUKINUMAB
     Dosage: 300 MG, QW
     Route: 058
  5. COSENTYX [Suspect]
     Active Substance: SECUKINUMAB
     Dosage: 300 MG, QW
     Route: 058
  6. COSENTYX [Suspect]
     Active Substance: SECUKINUMAB
     Dosage: 150 MG, QMO
     Route: 058

REACTIONS (4)
  - Pain in extremity [Unknown]
  - Peripheral swelling [Unknown]
  - Concomitant disease aggravated [Unknown]
  - Inappropriate schedule of product administration [Unknown]
